FAERS Safety Report 4973094-2 (Version None)
Quarter: 2006Q2

REPORT INFORMATION
  Report Type: 
  Country: None (occurrence: None)
  Receive Date: 20060414
  Receipt Date: 20041028
  Transmission Date: 20061013
  Serious: Yes (Hospitalization, Disabling)
  Sender: FDA-Public Use
  Company Number: US-ROCHE-384993

PATIENT
  Age: 17 Year
  Sex: Female
  Weight: 54 kg

DRUGS (4)
  1. ACCUTANE [Suspect]
     Indication: ACNE
     Route: 048
     Dates: start: 19980422, end: 19980615
  2. ACCUTANE [Suspect]
     Route: 048
     Dates: start: 19971204, end: 19980112
  3. ACCUTANE [Suspect]
     Route: 048
     Dates: start: 19980113, end: 19980317
  4. ACCUTANE [Suspect]
     Route: 048
     Dates: start: 19980318, end: 19980421

REACTIONS (60)
  - ABDOMINAL ABSCESS [None]
  - ABDOMINAL PAIN [None]
  - ABDOMINAL PAIN UPPER [None]
  - ABDOMINAL TENDERNESS [None]
  - ABSCESS INTESTINAL [None]
  - ADJUSTMENT DISORDER [None]
  - ALOPECIA EFFLUVIUM [None]
  - ANAEMIA [None]
  - ANHEDONIA [None]
  - ANXIETY [None]
  - ASTHMA [None]
  - BACK PAIN [None]
  - BOREDOM [None]
  - CD4 LYMPHOCYTES DECREASED [None]
  - CD8 LYMPHOCYTES DECREASED [None]
  - CELLULITIS [None]
  - CHEST DISCOMFORT [None]
  - CHEST PAIN [None]
  - COLITIS [None]
  - CONDUCTION DISORDER [None]
  - CROHN'S DISEASE [None]
  - DEPRESSION [None]
  - DIARRHOEA [None]
  - DIZZINESS [None]
  - DYSPNOEA [None]
  - ENTEROCUTANEOUS FISTULA [None]
  - EROSIVE OESOPHAGITIS [None]
  - FATIGUE [None]
  - GASTROINTESTINAL DISORDER [None]
  - GASTROINTESTINAL ULCER [None]
  - HAEMATOCHEZIA [None]
  - HERNIA [None]
  - INFLAMMATORY BOWEL DISEASE [None]
  - INJURY [None]
  - INTESTINAL HAEMORRHAGE [None]
  - IRON DEFICIENCY ANAEMIA [None]
  - IRRITABLE BOWEL SYNDROME [None]
  - LARGE INTESTINE PERFORATION [None]
  - MELANOCYTIC NAEVUS [None]
  - MULTI-ORGAN DISORDER [None]
  - MUSCLE ABSCESS [None]
  - NAUSEA [None]
  - NERVE INJURY [None]
  - NEURALGIA [None]
  - ORAL CANDIDIASIS [None]
  - PAIN [None]
  - PERITONEAL ABSCESS [None]
  - PERITONEAL INFECTION [None]
  - PERITONITIS [None]
  - PILONIDAL CYST [None]
  - POSTOPERATIVE ILEUS [None]
  - PSEUDOPOLYP [None]
  - PYREXIA [None]
  - RECTAL HAEMORRHAGE [None]
  - RED BLOOD CELL SEDIMENTATION RATE INCREASED [None]
  - SINUS BRADYCARDIA [None]
  - SOMNOLENCE [None]
  - SUPRAVENTRICULAR EXTRASYSTOLES [None]
  - VOMITING [None]
  - WEIGHT DECREASED [None]
